FAERS Safety Report 8494629-1 (Version None)
Quarter: 2012Q3

REPORT INFORMATION
  Report Type: 
  Country: None (occurrence: None)
  Receive Date: 20120709
  Receipt Date: 20120628
  Transmission Date: 20120928
  Serious: Yes (Death, Hospitalization, Other)
  Sender: FDA-Public Use
  Company Number: GB-MILLENNIUM PHARMACEUTICALS, INC.-2012-03004

PATIENT

DRUGS (10)
  1. DEXAMETHASONE [Concomitant]
     Indication: MULTIPLE MYELOMA
  2. ALLOPURINOL [Concomitant]
  3. ACICLOVIR [Concomitant]
     Indication: PROPHYLAXIS
  4. OMEPRAZOLE [Concomitant]
  5. BISOPROLOL FUMARATE [Concomitant]
  6. WARFARIN SODIUM [Concomitant]
     Indication: ATRIAL FIBRILLATION
  7. VELCADE [Suspect]
     Indication: MULTIPLE MYELOMA
     Dosage: 2.25 MG, UNK
     Route: 058
     Dates: start: 20120326, end: 20120426
  8. FUROSEMIDE [Concomitant]
     Dosage: 40 MG, UNK
  9. FLUDROCORTISONE ACETATE [Concomitant]
     Indication: ORTHOSTATIC HYPOTENSION
     Dosage: UNK
  10. FLUCONAZOLE [Concomitant]
     Indication: PROPHYLAXIS

REACTIONS (9)
  - SYNCOPE [None]
  - OEDEMA PERIPHERAL [None]
  - CYANOSIS [None]
  - CARDIAC ARREST [None]
  - HAEMORRHAGE [None]
  - PULMONARY HYPERTENSION [None]
  - ATRIAL FIBRILLATION [None]
  - UNRESPONSIVE TO STIMULI [None]
  - OFF LABEL USE [None]
